FAERS Safety Report 7131091-5 (Version None)
Quarter: 2010Q4

REPORT INFORMATION
  Report Type: 
  Country: None (occurrence: None)
  Receive Date: 20101124
  Receipt Date: 20101124
  Transmission Date: 20110411
  Serious: No
  Sender: FDA-Public Use
  Company Number: None

PATIENT
  Sex: Male
  Weight: 68.0396 kg

DRUGS (2)
  1. PREDNISONE [Suspect]
     Indication: BACK PAIN
     Dosage: 2 PILLS 5 TIMES DAILY ORAL; 1 PILL 5 TIMES 1/2 PILL 5 TIMES ORAL
     Route: 048
     Dates: start: 20100719, end: 20100803
  2. PREDNISONE [Suspect]
     Indication: PAIN IN EXTREMITY
     Dosage: 2 PILLS 5 TIMES DAILY ORAL; 1 PILL 5 TIMES 1/2 PILL 5 TIMES ORAL
     Route: 048
     Dates: start: 20100719, end: 20100803

REACTIONS (7)
  - ARTHRALGIA [None]
  - ASTHENIA [None]
  - BACK PAIN [None]
  - BLINDNESS [None]
  - DIPLOPIA [None]
  - HEADACHE [None]
  - WEIGHT DECREASED [None]
